FAERS Safety Report 12083670 (Version 1)
Quarter: 2016Q1

REPORT INFORMATION
  Report Type: Other
  Country: IT (occurrence: IT)
  Receive Date: 20160217
  Receipt Date: 20160217
  Transmission Date: 20160526
  Serious: Yes (Hospitalization)
  Sender: FDA-Public Use
  Company Number: IT-MYLANLABS-2016M1006697

PATIENT

DRUGS (3)
  1. GABAPENTIN. [Suspect]
     Active Substance: GABAPENTIN
     Indication: PROCEDURAL PAIN
     Dosage: 1200 MG, QD
     Route: 048
     Dates: start: 20150101
  2. LANSOPRAZOLE. [Concomitant]
     Active Substance: LANSOPRAZOLE
     Indication: PRODUCT USED FOR UNKNOWN INDICATION
     Dosage: 30 MG, UNK
     Route: 048
  3. JURNISTA [Suspect]
     Active Substance: HYDROMORPHONE HYDROCHLORIDE
     Indication: PROCEDURAL PAIN
     Dosage: 2 DF, QD
     Route: 048
     Dates: start: 20150101

REACTIONS (1)
  - Sopor [Unknown]

NARRATIVE: CASE EVENT DATE: 20151205
